FAERS Safety Report 19479572 (Version 1)
Quarter: 2021Q2

REPORT INFORMATION
  Report Type: Spontaneous
  Country: US (occurrence: US)
  Receive Date: 20210630
  Receipt Date: 20210630
  Transmission Date: 20210717
  Serious: Yes (Other)
  Sender: FDA-Public Use
  Company Number: US-COOPERSURGICAL, INC.-US-2021CPS001804

PATIENT
  Age: 18 Year
  Sex: Female
  Weight: 65.76 kg

DRUGS (2)
  1. PARAGARD T 380A [Suspect]
     Active Substance: COPPER
     Dosage: UNK
     Route: 015
     Dates: start: 20210506
  2. PARAGARD T 380A [Suspect]
     Active Substance: COPPER
     Indication: CONTRACEPTION
     Dosage: UNK
     Route: 015
     Dates: start: 20210402, end: 20210506

REACTIONS (3)
  - Device dislocation [Recovered/Resolved]
  - Complication of device insertion [Recovered/Resolved]
  - Hydrometra [Unknown]

NARRATIVE: CASE EVENT DATE: 20210402
